FAERS Safety Report 6189681-2 (Version None)
Quarter: 2009Q2

REPORT INFORMATION
  Report Type: 
  Country: None (occurrence: None)
  Receive Date: 20090512
  Receipt Date: 20090512
  Transmission Date: 20091009
  Serious: Yes (Other)
  Sender: FDA-Public Use
  Company Number: None

PATIENT
  Sex: Female

DRUGS (1)
  1. ERTAPENEM [Suspect]
     Indication: GROIN INFECTION
     Dosage: 1 GRAM Q24HRS IV
     Route: 042
     Dates: start: 20090417, end: 20090426

REACTIONS (1)
  - ARTHRITIS [None]
